FAERS Safety Report 6384212-6 (Version None)
Quarter: 2009Q4

REPORT INFORMATION
  Report Type: 
  Country: None (occurrence: None)
  Receive Date: 20091001
  Receipt Date: 20090925
  Transmission Date: 20100525
  Serious: Yes (Other)
  Sender: FDA-Public Use
  Company Number: B0585784A

PATIENT
  Sex: Male

DRUGS (7)
  1. REQUIP [Suspect]
     Indication: PARKINSON'S DISEASE
     Route: 048
     Dates: start: 20080724, end: 20090716
  2. GASMOTIN [Concomitant]
     Indication: PARKINSON'S DISEASE
     Dosage: 15MG PER DAY
     Route: 048
  3. NORVASC [Concomitant]
     Indication: PARKINSON'S DISEASE
     Dosage: 5MG PER DAY
     Route: 048
  4. LANDSEN [Concomitant]
     Indication: PARKINSON'S DISEASE
     Dosage: .5MG PER DAY
     Route: 048
  5. CHINESE MEDICINE [Concomitant]
     Indication: PARKINSON'S DISEASE
     Dosage: 7.5G PER DAY
     Route: 048
  6. DIOVAN [Concomitant]
     Indication: PARKINSON'S DISEASE
     Dosage: 80MG PER DAY
     Route: 048
  7. EC DOPARL [Concomitant]
     Indication: PARKINSON'S DISEASE
     Dosage: 300MG PER DAY
     Route: 048
     Dates: start: 20090710

REACTIONS (5)
  - HALLUCINATION [None]
  - ROAD TRAFFIC ACCIDENT [None]
  - SLEEP DISORDER [None]
  - SOMNOLENCE [None]
  - SUDDEN ONSET OF SLEEP [None]
